FAERS Safety Report 19184142 (Version 2)
Quarter: 2021Q2

REPORT INFORMATION
  Report Type: Spontaneous
  Country: JP (occurrence: JP)
  Receive Date: 20210427
  Receipt Date: 20210528
  Transmission Date: 20210717
  Serious: Yes (Other)
  Sender: FDA-Public Use
  Company Number: JP-FERRINGPH-2020FE05091

PATIENT
  Age: 7 Decade
  Sex: Female

DRUGS (6)
  1. MINIRINMELT [Suspect]
     Active Substance: DESMOPRESSIN ACETATE
     Dosage: 120 UG, 2 TIMES DAILY
     Route: 065
     Dates: start: 20200823, end: 20200906
  2. DESMOPRESSIN KYOWA [Suspect]
     Active Substance: DESMOPRESSIN
     Indication: DIABETES INSIPIDUS
     Dosage: 2 DF, 2 TIMES DAILY
     Route: 065
     Dates: start: 20200709, end: 20200818
  3. MINIRINMELT [Suspect]
     Active Substance: DESMOPRESSIN ACETATE
     Dosage: 60 UG, 2 TIMES DAILY
     Route: 065
     Dates: start: 20200818, end: 20200823
  4. METGLUCO [Concomitant]
     Active Substance: METFORMIN HYDROCHLORIDE
     Indication: DIABETES MELLITUS
     Dosage: 250 MG, 2 TIMES DAILY
     Route: 065
  5. PITRESSIN [Concomitant]
     Active Substance: VASOPRESSIN
     Indication: DIABETES INSIPIDUS
     Dosage: UNK
     Route: 065
     Dates: start: 20200818, end: 20200821
  6. MINIRINMELT [Suspect]
     Active Substance: DESMOPRESSIN ACETATE
     Indication: DIABETES INSIPIDUS
     Dosage: 180 UG
     Route: 065
     Dates: start: 20200907

REACTIONS (7)
  - Hypernatraemia [Recovered/Resolved]
  - Pneumocephalus [Recovered/Resolved]
  - Depressed level of consciousness [Recovered/Resolved]
  - Urine output increased [Recovered/Resolved]
  - Meningitis bacterial [Recovered/Resolved]
  - Urine output decreased [Recovered/Resolved]
  - Hyponatraemia [Recovered/Resolved]

NARRATIVE: CASE EVENT DATE: 20200718
